FAERS Safety Report 6786532-X (Version None)
Quarter: 2010Q2

REPORT INFORMATION
  Report Type: 
  Country: None (occurrence: None)
  Receive Date: 20100623
  Receipt Date: 20090810
  Transmission Date: 20101027
  Serious: No
  Sender: FDA-Public Use
  Company Number: US-TYCO HEALTHCARE/MALLINCKRODT-T200901542

PATIENT

DRUGS (2)
  1. TECHNESCAN MAG3 [Suspect]
     Dosage: UNK
     Dates: start: 20090804, end: 20090804
  2. ULTRA-TECHNEKOW [Concomitant]
     Dosage: UNK
     Dates: start: 20090804, end: 20090804

REACTIONS (2)
  - DRUG DISPENSING ERROR [None]
  - WRONG DRUG ADMINISTERED [None]
